FAERS Safety Report 25364717 (Version 3)
Quarter: 2025Q4

REPORT INFORMATION
  Report Type: Spontaneous
  Country: EU (occurrence: EU)
  Receive Date: 20250527
  Receipt Date: 20251107
  Transmission Date: 20260117
  Serious: Yes (Other)
  Sender: MYLAN
  Company Number: EU-RECORDATI-2025003235

PATIENT
  Age: 61 Year
  Sex: Male

DRUGS (13)
  1. METOPROLOL [Suspect]
     Active Substance: METOPROLOL
     Indication: Atrial fibrillation
     Dosage: UNK
  2. METOPROLOL [Suspect]
     Active Substance: METOPROLOL
     Indication: Cardiac failure
  3. RIVAROXABAN [Suspect]
     Active Substance: RIVAROXABAN
     Indication: Atrial fibrillation
     Dosage: UNK
  4. RIVAROXABAN [Suspect]
     Active Substance: RIVAROXABAN
     Indication: Cardiac failure
  5. IBUPROFEN [Suspect]
     Active Substance: IBUPROFEN
     Indication: Atrial fibrillation
     Dosage: UNK
  6. IBUPROFEN [Suspect]
     Active Substance: IBUPROFEN
     Indication: Cardiac failure
  7. DAPAGLIFLOZIN [Suspect]
     Active Substance: DAPAGLIFLOZIN
     Indication: Atrial fibrillation
     Dosage: UNK
  8. DAPAGLIFLOZIN [Suspect]
     Active Substance: DAPAGLIFLOZIN
     Indication: Cardiac failure
  9. FLECAINIDE [Suspect]
     Active Substance: FLECAINIDE
     Indication: Atrial fibrillation
     Dosage: 200 MILLIGRAM, QD
  10. FLECAINIDE [Suspect]
     Active Substance: FLECAINIDE
     Indication: Cardiac failure
  11. ZOFENOPRIL [Suspect]
     Active Substance: ZOFENOPRIL
     Indication: Atrial fibrillation
     Dosage: UNK
  12. ZOFENOPRIL [Suspect]
     Active Substance: ZOFENOPRIL
     Indication: Cardiac failure
  13. TOLPERISONE [Concomitant]
     Active Substance: TOLPERISONE
     Indication: Sacral pain
     Dosage: 150 MILLIGRAM, BID

REACTIONS (3)
  - Ventricular arrhythmia [Unknown]
  - Enzyme inhibition [Unknown]
  - Off label use [Unknown]
